FAERS Safety Report 7788286-7 (Version None)
Quarter: 2011Q3

REPORT INFORMATION
  Report Type: 
  Country: None (occurrence: None)
  Receive Date: 20110927
  Receipt Date: 20110912
  Transmission Date: 20111222
  Serious: Yes (Hospitalization)
  Sender: FDA-Public Use
  Company Number: AUR-APL-2011-05061

PATIENT
  Age: 56 Year
  Sex: Female

DRUGS (3)
  1. LISINOPRIL [Suspect]
     Indication: PRODUCT USED FOR UNKNOWN INDICATION
     Dosage: ORAL
     Route: 048
  2. FLUOXETINE (FLOUOXETINE) [Concomitant]
  3. POTASSIUM CHLORIDE [Suspect]
     Indication: PRODUCT USED FOR UNKNOWN INDICATION
     Dosage: ORAL
     Route: 048

REACTIONS (19)
  - BLOOD CHLORIDE INCREASED [None]
  - URINE OUTPUT DECREASED [None]
  - LETHARGY [None]
  - BRADYCARDIA [None]
  - MULTIPLE DRUG OVERDOSE INTENTIONAL [None]
  - UNRESPONSIVE TO STIMULI [None]
  - PCO2 DECREASED [None]
  - PO2 INCREASED [None]
  - SUICIDE ATTEMPT [None]
  - VENTRICULAR FIBRILLATION [None]
  - HYPERKALAEMIA [None]
  - LABILE BLOOD PRESSURE [None]
  - CARDIAC ARREST [None]
  - VENTRICULAR TACHYCARDIA [None]
  - RESPIRATION ABNORMAL [None]
  - BLOOD PH DECREASED [None]
  - HAEMODIALYSIS [None]
  - DEPRESSIVE SYMPTOM [None]
  - HYPOTENSION [None]
